FAERS Safety Report 13807588 (Version 2)
Quarter: 2017Q3

REPORT INFORMATION
  Report Type: Spontaneous
  Country: JP (occurrence: JP)
  Receive Date: 20170728
  Receipt Date: 20170810
  Transmission Date: 20171127
  Serious: Yes (Hospitalization)
  Sender: FDA-Public Use
  Company Number: JP-TEVA-790227ROM

PATIENT
  Age: 66 Year
  Sex: Male

DRUGS (3)
  1. BEVACIZUMAB. [Suspect]
     Active Substance: BEVACIZUMAB
     Indication: RECTAL CANCER STAGE IV
     Dosage: 7.5MG/KG, ON DAY 1, EVERY THREE WEEKS, 20 COURSES OF XELOX+BEVACIZUMAB WERE ADMINISTERED
     Route: 065
  2. IRINOTECAN [Suspect]
     Active Substance: IRINOTECAN
     Indication: RECTAL CANCER STAGE IV
     Dosage: 150MG/M2, ON DAY 1, EVERY THREE WEEKS
     Route: 065
  3. GIMERACIL, OTERACIL, TEGAFUR [Suspect]
     Active Substance: GIMERACIL\OTERACIL\TEGAFUR
     Indication: RECTAL CANCER STAGE IV
     Dosage: 180MG/M2/DAY, DAY 1 EVENING-DAY 15 MORNING, EVERY THREE WEEKS
     Route: 065

REACTIONS (1)
  - Necrotising fasciitis [Recovering/Resolving]
